FAERS Safety Report 14278054 (Version 1)
Quarter: 2017Q4

REPORT INFORMATION
  Report Type: Spontaneous
  Country: GB (occurrence: GB)
  Receive Date: 20171211
  Receipt Date: 20171211
  Transmission Date: 20180321
  Serious: Yes (Other)
  Sender: FDA-Public Use
  Company Number: GB-OTSUKA-J201300269

PATIENT
  Sex: Female

DRUGS (1)
  1. ABILIFY [Suspect]
     Active Substance: ARIPIPRAZOLE
     Indication: DEMENTIA
     Dosage: INITIAL DOSE-10MG
     Route: 065

REACTIONS (2)
  - Off label use [Unknown]
  - Extrapyramidal disorder [Unknown]
